FAERS Safety Report 4796878-2 (Version None)
Quarter: 2005Q4

REPORT INFORMATION
  Report Type: 
  Country: None (occurrence: None)
  Receive Date: 20051013
  Receipt Date: 20050318
  Transmission Date: 20060501
  Serious: Yes (Death, Life-Threatening, Hospitalization, Other)
  Sender: FDA-Public Use
  Company Number: 2005PK00496

PATIENT
  Age: 34 Year
  Sex: Female
  Weight: 47 kg

DRUGS (9)
  1. ENTOCORT KAPSEL [Suspect]
     Indication: GRAFT VERSUS HOST DISEASE
     Route: 048
     Dates: start: 20040401
  2. DECORTIN H [Suspect]
     Indication: GRAFT VERSUS HOST DISEASE
     Route: 048
     Dates: start: 20040401
  3. PROGRAF [Suspect]
     Indication: GRAFT VERSUS HOST DISEASE
     Route: 048
     Dates: start: 20040401
  4. POSACONAZOLE [Concomitant]
     Indication: ASPERGILLOSIS
     Route: 048
     Dates: start: 20041124
  5. TAVOR [Concomitant]
     Indication: SEDATION
     Route: 048
  6. NEUPOGEN [Concomitant]
     Indication: NEUTROPENIA
     Route: 058
  7. PANTOZOL [Concomitant]
     Indication: PROPHYLAXIS AGAINST GASTROINTESTINAL ULCER
     Route: 048
  8. COTRIM DS [Concomitant]
     Indication: INFECTION PROPHYLAXIS
     Route: 048
  9. VALGANCICLOVIR [Concomitant]
     Indication: CYTOMEGALOVIRUS INFECTION
     Route: 048
     Dates: start: 20050216

REACTIONS (10)
  - ARTHRALGIA [None]
  - ASTHENIA [None]
  - BACTERIAL SEPSIS [None]
  - COUGH [None]
  - DYSPNOEA [None]
  - ENCEPHALITIS ENTEROVIRAL [None]
  - HEADACHE [None]
  - NAUSEA [None]
  - PYREXIA [None]
  - RESPIRATORY FAILURE [None]
